FAERS Safety Report 9660888 (Version 2)
Quarter: 2013Q4

REPORT INFORMATION
  Report Type: Spontaneous
  Country: US (occurrence: US)
  Receive Date: 20131031
  Receipt Date: 20131115
  Transmission Date: 20140711
  Serious: Yes (Hospitalization, Disabling, Other)
  Sender: FDA-Public Use
  Company Number: US-PFIZER INC-2013309701

PATIENT
  Age: 62 Year
  Sex: Male
  Weight: 86.17 kg

DRUGS (4)
  1. VIAGRA [Suspect]
     Indication: ERECTILE DYSFUNCTION
     Dosage: 100 MG, AS NEEDED
     Route: 048
  2. LOVAZA [Concomitant]
     Dosage: UNK
  3. COUMADINE [Concomitant]
     Indication: ANTICOAGULANT THERAPY
     Dosage: UNK
  4. LEVOTHYROXINE [Concomitant]
     Dosage: UNK

REACTIONS (2)
  - Myocardial infarction [Unknown]
  - Cardiac disorder [Unknown]
